FAERS Safety Report 15630254 (Version 1)
Quarter: 2018Q4

REPORT INFORMATION
  Report Type: Spontaneous
  Country: US (occurrence: US)
  Receive Date: 20181117
  Receipt Date: 20181117
  Transmission Date: 20190205
  Serious: Yes (Life-Threatening, Hospitalization, Disabling, Other)
  Sender: FDA-Public Use
  Company Number: None

PATIENT
  Age: 24 Year
  Sex: Male
  Weight: 90 kg

DRUGS (6)
  1. DAYTRANA [Suspect]
     Active Substance: METHYLPHENIDATE
     Indication: ATTENTION DEFICIT/HYPERACTIVITY DISORDER
     Dosage: ?          QUANTITY:1 PATCH(ES);?
     Route: 062
     Dates: start: 20170301, end: 20181009
  2. PROZAC [Concomitant]
     Active Substance: FLUOXETINE HYDROCHLORIDE
  3. RISPERDAL [Concomitant]
     Active Substance: RISPERIDONE
  4. TUMERIC [Concomitant]
     Active Substance: HERBALS\TURMERIC
  5. SULPHASALAZINE [Concomitant]
     Active Substance: SULFASALAZINE
  6. VITAMIN D [Concomitant]
     Active Substance: CHOLECALCIFEROL

REACTIONS (4)
  - Hallucination, auditory [None]
  - Skin discolouration [None]
  - Formication [None]
  - Hallucination, visual [None]

NARRATIVE: CASE EVENT DATE: 20180801
